FAERS Safety Report 18740244 (Version 47)
Quarter: 2024Q3

REPORT INFORMATION
  Report Type: Spontaneous
  Country: IN (occurrence: IN)
  Receive Date: 20210114
  Receipt Date: 20240927
  Transmission Date: 20241017
  Serious: Yes (Other)
  Sender: PFIZER
  Company Number: IN-PFIZER INC-2018536543

PATIENT
  Age: 62 Year
  Sex: Female
  Weight: 70 kg

DRUGS (22)
  1. PALBOCICLIB [Suspect]
     Active Substance: PALBOCICLIB
     Indication: Breast cancer metastatic
     Dosage: 125 MG, CYCLIC, ONCE DAILY, D1-D21, ONE WEEK OFF
     Route: 048
     Dates: start: 20180212
  2. PALBOCICLIB [Suspect]
     Active Substance: PALBOCICLIB
     Dosage: 100 MG, CYCLIC, D1 - D21, 1 WEEK OFF
  3. PALBOCICLIB [Suspect]
     Active Substance: PALBOCICLIB
     Dosage: 125 MG, 1X/DAY
     Route: 048
     Dates: start: 20200213
  4. PALBOCICLIB [Suspect]
     Active Substance: PALBOCICLIB
     Dosage: 100 MG, CYCLIC, ONCE DAILY D1-D21, 1W OFF
     Route: 048
  5. PALBOCICLIB [Suspect]
     Active Substance: PALBOCICLIB
     Indication: Breast cancer metastatic
     Dosage: 100 MG, CYCLIC, ONCE DAILY D1-D21 ONE WEEK OFF
     Route: 048
  6. CCM [Concomitant]
     Dosage: UNK UNK, 2X/DAY
     Dates: start: 201802
  7. LETROZOLE [Concomitant]
     Active Substance: LETROZOLE
     Dosage: 2.5 MG, 1X/DAY
  8. FEMARA [Concomitant]
     Active Substance: LETROZOLE
     Dosage: 2.5 MG, 1X/DAY
     Dates: start: 201802
  9. ACETAMINOPHEN\IBUPROFEN [Concomitant]
     Active Substance: ACETAMINOPHEN\IBUPROFEN
     Dosage: UNK
  10. NEUKINE [Concomitant]
     Dosage: UNK
     Route: 058
  11. ULTRACET [Concomitant]
     Active Substance: ACETAMINOPHEN\TRAMADOL HYDROCHLORIDE
     Dosage: UNK
  12. CHOLECALCIFEROL [Concomitant]
     Active Substance: CHOLECALCIFEROL
     Dosage: 6100 IU
  13. ZOLASTA [Concomitant]
     Dosage: ONCE IN 3MONTHS/DATE STARTED: 4.5 YEARS
  14. ZOLASTA [Concomitant]
     Dosage: UNK, MONTHLY
     Route: 042
  15. ZOLASTA [Concomitant]
     Dosage: 4 MG (IN 100 ML NS OVER 20 MINUTES)
  16. ZOLASTA [Concomitant]
     Dosage: (4) MONTHLY
     Route: 042
  17. ASPIRIN\ATORVASTATIN [Concomitant]
     Active Substance: ASPIRIN\ATORVASTATIN
     Dosage: 75/20MG, 1X/DAY
  18. TRIHEXYPHENIDYL HYDROCHLORIDE [Concomitant]
     Active Substance: TRIHEXYPHENIDYL HYDROCHLORIDE
     Dosage: 2 MG, 2X/DAY/FOR 3MONTHS
  19. TRIGABANTIN [Concomitant]
     Dosage: 100 MG, 2X/DAY
  20. LIVOGEN [FERROUS FUMARATE;FOLIC ACID] [Concomitant]
     Dosage: UNK, 1X/DAY
  21. GABAPENTIN [Concomitant]
     Active Substance: GABAPENTIN
     Dosage: 100 MG, 2X/DAY (6 MONTHS AS PER DR ADVICE)
  22. VERTIN [BETAHISTINE HYDROCHLORIDE] [Concomitant]
     Dosage: 24 MG, 1X/DAY (1 MONTH AS PER DR ADVICE)

REACTIONS (34)
  - Thrombocytopenia [Unknown]
  - Leukopenia [Not Recovered/Not Resolved]
  - Renal disorder [Unknown]
  - Basophil count decreased [Unknown]
  - Back pain [Unknown]
  - Oropharyngeal pain [Not Recovered/Not Resolved]
  - Asthenia [Not Recovered/Not Resolved]
  - Red blood cell count decreased [Unknown]
  - Red cell distribution width increased [Unknown]
  - Lymphocyte percentage increased [Unknown]
  - Pyrexia [Unknown]
  - Haemoglobin decreased [Unknown]
  - Haematocrit decreased [Unknown]
  - Mean cell haemoglobin increased [Not Recovered/Not Resolved]
  - Mean platelet volume decreased [Recovered/Resolved]
  - Eosinophil count increased [Recovered/Resolved]
  - Discomfort [Unknown]
  - Neck pain [Unknown]
  - Blood test abnormal [Unknown]
  - White blood cell count decreased [Unknown]
  - Mean cell haemoglobin concentration increased [Unknown]
  - Performance status decreased [Unknown]
  - Anisocytosis [Unknown]
  - Red blood cell hypochromic morphology present [Unknown]
  - Red blood cell microcytes present [Unknown]
  - Red blood cell macrocytes present [Unknown]
  - Blood creatinine increased [Unknown]
  - Glomerular filtration rate decreased [Unknown]
  - Ovarian cyst [Unknown]
  - Neutrophil count decreased [Unknown]
  - Thrombocytosis [Unknown]
  - Monocyte count decreased [Unknown]
  - Lymphocyte count decreased [Unknown]
  - Mean cell haemoglobin concentration decreased [Unknown]

NARRATIVE: CASE EVENT DATE: 20181217
